FAERS Safety Report 5723198-1 (Version None)
Quarter: 2008Q2

REPORT INFORMATION
  Report Type: 
  Country: None (occurrence: None)
  Receive Date: 20080430
  Receipt Date: 20071018
  Transmission Date: 20081010
  Serious: No
  Sender: FDA-Public Use
  Company Number: US-BAUSCH-2007BL003780

PATIENT
  Age: 65 Year
  Sex: Female

DRUGS (3)
  1. CYCLOPENTOLATE HYDROCHLORIDE OPHTHALMIC SOLUTION USP 1% [Suspect]
     Indication: MYDRIASIS
     Route: 047
     Dates: start: 20071014, end: 20071014
  2. CPAP (PILLOW) [Concomitant]
     Indication: SLEEP APNOEA SYNDROME
  3. ATENOLOL [Concomitant]
     Indication: HYPERTENSION
     Route: 048

REACTIONS (3)
  - GINGIVAL PAIN [None]
  - HALO VISION [None]
  - PAIN IN JAW [None]
